FAERS Safety Report 8859616 (Version 1)
Quarter: 2012Q4

REPORT INFORMATION
  Report Type: 
  Country: DE (occurrence: DE)
  Receive Date: 20121025
  Receipt Date: 20121025
  Transmission Date: 20130627
  Serious: Yes (Other)
  Sender: FDA-Public Use
  Company Number: DE-PFIZER INC-2012263577

PATIENT
  Age: 83 Year
  Sex: Male

DRUGS (1)
  1. TREVILOR [Suspect]
     Dosage: 300 mg, daily

REACTIONS (1)
  - Circulatory collapse [Unknown]
